FAERS Safety Report 7428971-X (Version None)
Quarter: 2011Q2

REPORT INFORMATION
  Report Type: 
  Country: None (occurrence: None)
  Receive Date: 20110418
  Receipt Date: 20110418
  Transmission Date: 20111010
  Serious: Yes (Hospitalization)
  Sender: FDA-Public Use
  Company Number: None

PATIENT
  Sex: Male
  Weight: 11.2 kg

DRUGS (2)
  1. CARBOPLATIN [Suspect]
     Dosage: 266 MG
     Dates: end: 20110330
  2. THIOTEPA [Suspect]
     Dosage: 210 MG
     Dates: end: 20110330

REACTIONS (9)
  - NEUTROPENIA [None]
  - PERINEAL PAIN [None]
  - STEM CELL TRANSPLANT [None]
  - TREATMENT NONCOMPLIANCE [None]
  - PYREXIA [None]
  - DIARRHOEA [None]
  - ESCHERICHIA TEST POSITIVE [None]
  - PLATELET COUNT DECREASED [None]
  - HAEMOGLOBIN DECREASED [None]
